FAERS Safety Report 25543174 (Version 1)
Quarter: 2025Q3

REPORT INFORMATION
  Report Type: Spontaneous
  Country: EU (occurrence: EU)
  Receive Date: 20250711
  Receipt Date: 20250711
  Transmission Date: 20251021
  Serious: Yes (Other)
  Sender: BAYER HEALTHCARE PHARMACEUTICALS INC.
  Company Number: EU-BAYER-2025A090422

PATIENT
  Sex: Female

DRUGS (3)
  1. MIRENA [Suspect]
     Active Substance: LEVONORGESTREL
     Indication: Endometrial hyperplasia with cellular atypia
     Dosage: 20?G/DAY
     Route: 015
  2. MIRENA [Suspect]
     Active Substance: LEVONORGESTREL
     Indication: Endometrial hyperplasia
  3. MIRENA [Suspect]
     Active Substance: LEVONORGESTREL
     Indication: Endometrial cancer

REACTIONS (5)
  - Pulmonary embolism [None]
  - Acute pulmonary oedema [None]
  - Product use in unapproved indication [None]
  - Product prescribing issue [None]
  - Medical device change [None]
